FAERS Safety Report 8866818 (Version 1)
Quarter: 2012Q4

REPORT INFORMATION
  Report Type: 
  Country: US (occurrence: US)
  Receive Date: 20121025
  Receipt Date: 20121025
  Transmission Date: 20130627
  Serious: No
  Sender: FDA-Public Use
  Company Number: US-AMGEN-USASP2012013512

PATIENT
  Age: 58 Year
  Sex: Female

DRUGS (7)
  1. ENBREL [Suspect]
     Indication: PRODUCT USED FOR UNKNOWN INDICATION
     Dosage: 50 mg, q2wk
     Route: 058
  2. NAPROSYN /00256201/ [Concomitant]
     Dosage: 375 mg, UNK
  3. METHOTREXATE [Concomitant]
     Dosage: 2.5 mg, UNK
  4. TRAVATAN [Concomitant]
     Dosage: UNK
  5. MULTIVITAMIN                       /00097801/ [Concomitant]
     Dosage: UNK
  6. CALCIUM +VIT D [Concomitant]
     Dosage: 600 mg, UNK
  7. FLEXERIL                           /00428402/ [Concomitant]
     Dosage: UNK

REACTIONS (2)
  - Sinusitis [Unknown]
  - Injection site pruritus [Unknown]
